FAERS Safety Report 14421901 (Version 1)
Quarter: 2018Q1

REPORT INFORMATION
  Report Type: Report from Study
  Country: US (occurrence: US)
  Receive Date: 20180122
  Receipt Date: 20180122
  Transmission Date: 20180509
  Serious: No
  Sender: FDA-Public Use
  Company Number: PHEH2018US002430

PATIENT
  Sex: Male

DRUGS (1)
  1. GLEEVEC [Suspect]
     Active Substance: IMATINIB MESYLATE
     Indication: PRODUCT USED FOR UNKNOWN INDICATION
     Route: 065

REACTIONS (6)
  - Weight decreased [Recovering/Resolving]
  - Feeling of body temperature change [Unknown]
  - Anaemia [Recovered/Resolved]
  - Headache [Recovered/Resolved]
  - White blood cell count abnormal [Recovered/Resolved]
  - Dizziness [Recovered/Resolved]
